FAERS Safety Report 7218396-4 (Version None)
Quarter: 2011Q1

REPORT INFORMATION
  Report Type: 
  Country: None (occurrence: None)
  Receive Date: 20110110
  Receipt Date: 20101228
  Transmission Date: 20110831
  Serious: Yes (Death, Hospitalization, Other)
  Sender: FDA-Public Use
  Company Number: IN-ELI_LILLY_AND_COMPANY-IN201012006526

PATIENT
  Age: 56 Year
  Sex: Male
  Weight: 53 kg

DRUGS (2)
  1. XIGRIS [Suspect]
     Indication: PNEUMONIA
     Dosage: UNK, UNKNOWN
     Route: 065
     Dates: start: 20101226, end: 20101226
  2. ANTIBIOTICS [Concomitant]
     Indication: PNEUMONIA
     Dosage: UNK, UNKNOWN
     Route: 065
     Dates: start: 20101225

REACTIONS (4)
  - MULTI-ORGAN FAILURE [None]
  - SEPSIS [None]
  - INTERNATIONAL NORMALISED RATIO INCREASED [None]
  - BLOOD BILIRUBIN INCREASED [None]
